FAERS Safety Report 15152542 (Version 1)
Quarter: 2018Q3

REPORT INFORMATION
  Report Type: Spontaneous
  Country: IE (occurrence: IE)
  Receive Date: 20180717
  Receipt Date: 20180717
  Transmission Date: 20181010
  Serious: Yes (Hospitalization, Other)
  Sender: FDA-Public Use
  Company Number: IE-ROCHE-1332066

PATIENT
  Sex: Female

DRUGS (1)
  1. HERCEPTIN [Suspect]
     Active Substance: TRASTUZUMAB
     Indication: BREAST CANCER
     Route: 065
     Dates: start: 2007

REACTIONS (5)
  - Hip arthroplasty [Unknown]
  - Pneumonia [Unknown]
  - Femur fracture [Unknown]
  - Joint dislocation [Unknown]
  - Pulmonary embolism [Unknown]
